FAERS Safety Report 7128770 (Version 4)
Quarter: 2013Q1

REPORT INFORMATION
  Report Type: Spontaneous
  Country: US (occurrence: US)
  Receive Date: 20090924
  Receipt Date: 20130214
  Transmission Date: 20140127
  Serious: Yes (Other)
  Sender: FDA-Public Use
  Company Number: US-ASTRAZENECA-2009UW19354

PATIENT
  Age: 39 Year
  Sex: Female
  Weight: 162.4 kg

DRUGS (12)
  1. SEROQUEL [Suspect]
     Indication: POST-TRAUMATIC STRESS DISORDER
     Route: 048
     Dates: start: 2001
  2. SEROQUEL [Suspect]
     Indication: POST-TRAUMATIC STRESS DISORDER
     Route: 048
     Dates: start: 2002
  3. NEXIUM [Suspect]
     Route: 048
  4. LAMICTAL [Concomitant]
  5. KLONOPIN [Concomitant]
  6. ZOLOFT [Concomitant]
  7. TRIAM/HCTZ [Concomitant]
     Dosage: DAILY
  8. LEVOTHYROXINE [Concomitant]
     Dosage: DAILY
  9. NAPROXEN [Concomitant]
  10. DIURETIC [Concomitant]
  11. SYNTHROID [Concomitant]
  12. TRIAM [Concomitant]

REACTIONS (19)
  - Galactorrhoea [Not Recovered/Not Resolved]
  - Hypersomnia [Unknown]
  - Drug dose omission [Unknown]
  - Off label use [Unknown]
  - Self injurious behaviour [Unknown]
  - Hypertension [Unknown]
  - Blood potassium decreased [Not Recovered/Not Resolved]
  - Activities of daily living impaired [Unknown]
  - Aphagia [Unknown]
  - Malaise [Unknown]
  - Pruritus [Unknown]
  - Mood altered [Unknown]
  - Insomnia [Unknown]
  - Flashback [Unknown]
  - Blepharospasm [Unknown]
  - Weight increased [Not Recovered/Not Resolved]
  - Withdrawal syndrome [Unknown]
  - Swollen tongue [Unknown]
  - Oedema peripheral [Not Recovered/Not Resolved]
